FAERS Safety Report 9558973 (Version 1)
Quarter: 2013Q3

REPORT INFORMATION
  Report Type: Spontaneous
  Country: US (occurrence: US)
  Receive Date: 20130927
  Receipt Date: 20130927
  Transmission Date: 20140515
  Serious: No
  Sender: FDA-Public Use
  Company Number: US-BIOGENIDEC-2013BI088295

PATIENT
  Sex: Female

DRUGS (1)
  1. AVONEX [Suspect]
     Indication: MULTIPLE SCLEROSIS
     Route: 030
     Dates: start: 20050516

REACTIONS (5)
  - Dental caries [Recovered/Resolved]
  - Vertigo [Not Recovered/Not Resolved]
  - Constipation [Recovered/Resolved]
  - Tooth extraction [Recovered/Resolved]
  - Feeling abnormal [Recovered/Resolved]
